FAERS Safety Report 4788837-0 (Version None)
Quarter: 2005Q4

REPORT INFORMATION
  Report Type: 
  Country: None (occurrence: None)
  Receive Date: 20051004
  Receipt Date: 20050921
  Transmission Date: 20060501
  Serious: Yes (Death)
  Sender: FDA-Public Use
  Company Number: 2005132645

PATIENT
  Age: 52 Year
  Sex: Female

DRUGS (1)
  1. CEFOBID [Suspect]
     Indication: PROPHYLAXIS
     Dosage: 2 GRAM (1 GRAM, BID INTERVAL:  EVERY DAY), INTRAVENOUS
     Route: 042
     Dates: start: 20050919, end: 20050919

REACTIONS (2)
  - CARDIO-RESPIRATORY ARREST [None]
  - VOMITING [None]
